FAERS Safety Report 5587442-6 (Version None)
Quarter: 2008Q1

REPORT INFORMATION
  Report Type: 
  Country: None (occurrence: None)
  Receive Date: 20080110
  Receipt Date: 20080104
  Transmission Date: 20080703
  Serious: Yes (Hospitalization, Other)
  Sender: FDA-Public Use
  Company Number: US-BOEHRINGER INGELHEIM PHARMACEUTICALS, INC.-2008-BP-00244BP

PATIENT
  Sex: Female

DRUGS (1)
  1. SPIRIVA [Suspect]
     Indication: BRONCHITIS
     Route: 055
     Dates: start: 20071201, end: 20080103

REACTIONS (12)
  - ABDOMINAL PAIN [None]
  - ANAEMIA [None]
  - DRY MOUTH [None]
  - GALLBLADDER DISORDER [None]
  - GASTRITIS [None]
  - MUSCULOSKELETAL PAIN [None]
  - MYALGIA [None]
  - OEDEMA PERIPHERAL [None]
  - PAIN IN EXTREMITY [None]
  - PERICARDIAL EFFUSION [None]
  - PRODUCTIVE COUGH [None]
  - WHEEZING [None]
